FAERS Safety Report 17073541 (Version 6)
Quarter: 2020Q1

REPORT INFORMATION
  Report Type: Spontaneous
  Country: US (occurrence: US)
  Receive Date: 20191126
  Receipt Date: 20200130
  Transmission Date: 20200409
  Serious: No
  Sender: FDA-Public Use
  Company Number: US-BIOGEN-2019BI00810488

PATIENT
  Sex: Male

DRUGS (3)
  1. XANAX [Concomitant]
     Active Substance: ALPRAZOLAM
     Route: 065
  2. TYSABRI [Suspect]
     Active Substance: NATALIZUMAB
     Indication: MULTIPLE SCLEROSIS
     Route: 065
     Dates: start: 20190918, end: 20191016
  3. MODAFINIL. [Concomitant]
     Active Substance: MODAFINIL
     Route: 065

REACTIONS (20)
  - Malaise [Not Recovered/Not Resolved]
  - Muscular weakness [Unknown]
  - Ear pruritus [Recovered/Resolved]
  - Depression [Unknown]
  - Anxiety [Unknown]
  - Muscle spasms [Unknown]
  - Gastrointestinal infection [Recovered/Resolved]
  - Hot flush [Recovered/Resolved]
  - Paraesthesia [Recovered/Resolved]
  - Fatigue [Unknown]
  - Temperature intolerance [Unknown]
  - Blood pressure increased [Unknown]
  - Hypersensitivity [Recovered/Resolved]
  - Wheezing [Unknown]
  - Balance disorder [Unknown]
  - Discomfort [Recovered/Resolved]
  - Dysphagia [Unknown]
  - Dyspnoea [Unknown]
  - Dyspepsia [Unknown]
  - Dizziness [Unknown]
